FAERS Safety Report 6270751-5 (Version None)
Quarter: 2009Q3

REPORT INFORMATION
  Report Type: 
  Country: None (occurrence: None)
  Receive Date: 20090716
  Receipt Date: 20090708
  Transmission Date: 20100115
  Serious: Yes (Other)
  Sender: FDA-Public Use
  Company Number: CH-WYE-G04010109

PATIENT
  Sex: Male

DRUGS (2)
  1. EFFEXOR [Suspect]
     Indication: DEPRESSION
     Dosage: 75 MG DAILY UNTIL 2008, THEN TAPERED OFF DURING 3 WEEKS
     Route: 064
  2. CITALOPRAM HYDROBROMIDE [Suspect]
     Dosage: DOSE AND FREQUENCY UNKNOWN, FROM THE 12TH WEEK OF PREGNANCY UNTIL DELIVERY
     Route: 064

REACTIONS (2)
  - AGITATION NEONATAL [None]
  - APGAR SCORE LOW [None]
